FAERS Safety Report 13854534 (Version 1)
Quarter: 2017Q3

REPORT INFORMATION
  Report Type: Spontaneous
  Country: US (occurrence: US)
  Receive Date: 20170810
  Receipt Date: 20170810
  Transmission Date: 20171127
  Serious: Yes (Other)
  Sender: FDA-Public Use
  Company Number: US-PFIZER INC-2017342883

PATIENT
  Age: 78 Year
  Sex: Male
  Weight: 80.74 kg

DRUGS (1)
  1. SUTENT [Suspect]
     Active Substance: SUNITINIB MALATE
     Indication: RENAL CELL CARCINOMA
     Dosage: 50 MG, ALTERNATE DAY (50MG CAPSULE BY MOUTH EVERY OTHER DAY)
     Route: 048
     Dates: end: 2017

REACTIONS (2)
  - Cataract [Unknown]
  - Neoplasm progression [Unknown]

NARRATIVE: CASE EVENT DATE: 201707
